FAERS Safety Report 8974849 (Version 1)
Quarter: 2012Q4

REPORT INFORMATION
  Report Type: 
  Country: CN (occurrence: CN)
  Receive Date: 20121219
  Receipt Date: 20121219
  Transmission Date: 20130627
  Serious: Yes (Hospitalization, Other)
  Sender: FDA-Public Use
  Company Number: PHHY2012CN109050

PATIENT
  Age: 30 Year
  Sex: Male

DRUGS (1)
  1. SEBIVO [Suspect]
     Indication: HEPATITIS B
     Dosage: 600 mg, QD
     Route: 048
     Dates: start: 20090601, end: 20100805

REACTIONS (8)
  - Myoglobin blood increased [Recovering/Resolving]
  - Gastritis [Unknown]
  - Blood creatine phosphokinase increased [Unknown]
  - Myalgia [Unknown]
  - Blood lactate dehydrogenase increased [Recovering/Resolving]
  - Nausea [Unknown]
  - Aspartate aminotransferase increased [Recovering/Resolving]
  - Fatigue [Recovering/Resolving]
